FAERS Safety Report 23191348 (Version 1)
Quarter: 2023Q4

REPORT INFORMATION
  Report Type: Spontaneous
  Country: FR (occurrence: FR)
  Receive Date: 20231116
  Receipt Date: 20231116
  Transmission Date: 20240109
  Serious: Yes (Other)
  Sender: FDA-Public Use
  Company Number: FR-SUN PHARMACEUTICAL INDUSTRIES LTD-2023RR-418164

PATIENT
  Age: 72 Year
  Sex: Female
  Weight: 55.1 kg

DRUGS (17)
  1. OXALIPLATIN [Suspect]
     Active Substance: OXALIPLATIN
     Indication: Colorectal adenocarcinoma
     Dosage: C5 CONCESSION 50%
     Route: 040
     Dates: start: 20230607, end: 20230607
  2. OXALIPLATIN [Suspect]
     Active Substance: OXALIPLATIN
     Dosage: C1
     Route: 040
     Dates: start: 20230412, end: 20230412
  3. OXALIPLATIN [Suspect]
     Active Substance: OXALIPLATIN
     Dosage: C2 CONCESSION 30%
     Route: 040
     Dates: start: 20230426, end: 20230426
  4. OXALIPLATIN [Suspect]
     Active Substance: OXALIPLATIN
     Dosage: C3 CONCESSION 30%
     Route: 040
     Dates: start: 20230510, end: 20230510
  5. OXALIPLATIN [Suspect]
     Active Substance: OXALIPLATIN
     Dosage: C4 CONCESSION 30%
     Route: 065
     Dates: start: 20230524, end: 20230524
  6. FLUOROURACIL [Suspect]
     Active Substance: FLUOROURACIL
     Indication: Adenocarcinoma of colon
     Dosage: 2400 MILLIGRAM/SQ. METER/ 2 WEEKS
     Route: 040
     Dates: start: 20230412, end: 20230621
  7. LEVOLEUCOVORIN CALCIUM [Concomitant]
     Active Substance: LEVOLEUCOVORIN CALCIUM
     Indication: Adenocarcinoma of colon
     Dosage: 310 MILLIGRAM, 1DOSE/2 WEEKS
     Route: 040
     Dates: start: 20230412, end: 20230621
  8. ACETAMINOPHEN [Concomitant]
     Active Substance: ACETAMINOPHEN
     Indication: Pain
     Dosage: AS NEEDED
     Route: 048
  9. BISOPROLOL [Concomitant]
     Active Substance: BISOPROLOL\BISOPROLOL FUMARATE
     Indication: Myocardial ischaemia
     Dosage: 1.25 MILLIGRAM, DAILY
     Route: 048
  10. POTASSIUM CHLORIDE [Concomitant]
     Active Substance: POTASSIUM CHLORIDE
     Indication: Hypokalaemia
     Dosage: 1-1-1
     Route: 048
  11. DORZOLAMIDE HYDROCHLORIDE\TIMOLOL MALEATE [Concomitant]
     Active Substance: DORZOLAMIDE HYDROCHLORIDE\TIMOLOL MALEATE
     Indication: Glaucoma
     Dosage: RIGHT EYE MORNING AND EVENING
     Route: 031
  12. TEMESTA [Concomitant]
     Indication: Insomnia
     Dosage: 1 AT NIGHT
     Route: 048
  13. PANTOPRAZOLE [Concomitant]
     Active Substance: PANTOPRAZOLE
     Indication: Product used for unknown indication
     Dosage: 20 MILLIGRAM, DAILY
     Route: 048
  14. PRIMPERAN [Concomitant]
     Active Substance: METOCLOPRAMIDE HYDROCHLORIDE
     Indication: Prophylaxis of nausea and vomiting
     Dosage: AS NEEDED
     Route: 048
  15. ATORVASTATIN [Concomitant]
     Active Substance: ATORVASTATIN
     Indication: Myocardial ischaemia
     Dosage: 20 MILLIGRAM, DAILY
     Route: 048
  16. ASPIRIN [Concomitant]
     Active Substance: ASPIRIN
     Indication: Myocardial ischaemia
     Dosage: 1 MILLIGRAM, DAILY
     Route: 048
  17. GAVISCON [Concomitant]
     Active Substance: ALUMINUM HYDROXIDE\MAGNESIUM CARBONATE
     Indication: Product used for unknown indication
     Dosage: 1 SB EVERY 6 HOURS
     Route: 048

REACTIONS (3)
  - Neuropathy peripheral [Not Recovered/Not Resolved]
  - Neuropathy peripheral [Recovered/Resolved]
  - Asthenia [Not Recovered/Not Resolved]

NARRATIVE: CASE EVENT DATE: 20230426
